FAERS Safety Report 11545154 (Version 3)
Quarter: 2015Q4

REPORT INFORMATION
  Report Type: Spontaneous
  Country: DE (occurrence: DE)
  Receive Date: 20150924
  Receipt Date: 20151103
  Transmission Date: 20160304
  Serious: Yes (Other)
  Sender: FDA-Public Use
  Company Number: DE-SUN PHARMACEUTICAL INDUSTRIES LTD-2015RR-103264

PATIENT

DRUGS (3)
  1. ATORVASTATIN BASICS  20 MG FILMTABLETTEN [Suspect]
     Active Substance: ATORVASTATIN
     Indication: HYPERCHOLESTEROLAEMIA
     Dosage: 1 DF, DAILY, IN THE EVENING
     Route: 048
     Dates: start: 200512
  2. ASS PROTECT 100 [Concomitant]
     Indication: PRODUCT USED FOR UNKNOWN INDICATION
     Dosage: 100 MG, DAILY (0-1-0)
     Route: 065
  3. BELOC-ZOC MITE [Concomitant]
     Active Substance: METOPROLOL SUCCINATE
     Indication: PRODUCT USED FOR UNKNOWN INDICATION
     Dosage: 1 DF, BID, 1-0-1
     Route: 065

REACTIONS (1)
  - Polyneuropathy [Not Recovered/Not Resolved]

NARRATIVE: CASE EVENT DATE: 2013
